FAERS Safety Report 24849297 (Version 1)
Quarter: 2025Q1

REPORT INFORMATION
  Report Type: Spontaneous
  Country: US (occurrence: None)
  Receive Date: 20250116
  Receipt Date: 20250116
  Transmission Date: 20250409
  Serious: Yes (Hospitalization)
  Sender: FDA-CTU
  Company Number: None

PATIENT
  Age: 63 Year
  Sex: Male
  Weight: 70 kg

DRUGS (4)
  1. FLUOROURACIL [Suspect]
     Active Substance: FLUOROURACIL
     Dates: end: 20241220
  2. IRINOTECAN [Suspect]
     Active Substance: IRINOTECAN
     Dates: end: 20241218
  3. LEUCOVORIN CALCIUM [Suspect]
     Active Substance: LEUCOVORIN CALCIUM
     Dates: end: 20241218
  4. ELOXATIN [Suspect]
     Active Substance: OXALIPLATIN
     Dates: end: 20241218

REACTIONS (7)
  - Asthenia [None]
  - Dyspnoea [None]
  - Melaena [None]
  - Respiratory syncytial virus test positive [None]
  - Anaemia [None]
  - Transfusion [None]
  - Upper respiratory tract infection [None]

NARRATIVE: CASE EVENT DATE: 20250102
